FAERS Safety Report 5154961-6 (Version None)
Quarter: 2006Q4

REPORT INFORMATION
  Report Type: 
  Country: None (occurrence: None)
  Receive Date: 20061120
  Receipt Date: 20061120
  Transmission Date: 20070319
  Serious: Yes (Life-Threatening)
  Sender: FDA-Public Use
  Company Number: None

PATIENT
  Age: 36 Year
  Sex: Male
  Weight: 49.8957 kg

DRUGS (3)
  1. NORFLOXACIN [Suspect]
     Indication: GASTROINTESTINAL INFECTION
     Dosage: 400 MG  TWICE A DAY  PO
     Route: 048
     Dates: start: 20061105, end: 20061109
  2. NORFLOXACIN [Suspect]
     Indication: OVERGROWTH BACTERIAL
     Dosage: 400 MG  TWICE A DAY  PO
     Route: 048
     Dates: start: 20061105, end: 20061109
  3. PANCREALIPASE MT10 [Concomitant]

REACTIONS (3)
  - ADRENAL INSUFFICIENCY [None]
  - HYPOGLYCAEMIA [None]
  - INSULINOMA [None]
